FAERS Safety Report 16669603 (Version 1)
Quarter: 2019Q3

REPORT INFORMATION
  Report Type: Spontaneous
  Country: US (occurrence: US)
  Receive Date: 20190805
  Receipt Date: 20190805
  Transmission Date: 20191004
  Serious: No
  Sender: FDA-Public Use
  Company Number: US-MTPC-MTDA2019-0064907

PATIENT

DRUGS (1)
  1. RADICAVA [Suspect]
     Active Substance: EDARAVONE
     Indication: PRODUCT USED FOR UNKNOWN INDICATION
     Dosage: INFUSION GIVEN OVER 1 HOUR, 10 DAYS A MONTH
     Route: 042

REACTIONS (1)
  - Drug ineffective [Unknown]
